FAERS Safety Report 9985115 (Version 2)
Quarter: 2014Q1

REPORT INFORMATION
  Report Type: Report from Study
  Country: NL (occurrence: NL)
  Receive Date: 20140307
  Receipt Date: 20140324
  Transmission Date: 20141002
  Serious: Yes (Other)
  Sender: FDA-Public Use
  Company Number: NL-BAYER-2014-030453

PATIENT
  Age: 55 Year
  Sex: Female

DRUGS (3)
  1. BETAFERON [Suspect]
     Dosage: 250 ?G, QOD
     Dates: start: 2000
  2. METOPROLOL [Concomitant]
     Dosage: 200 MG, QD
  3. COAPROVEL [Concomitant]
     Dosage: 12.5 MG, QD

REACTIONS (2)
  - Immune thrombocytopenic purpura [Not Recovered/Not Resolved]
  - Ovarian cyst [None]
